FAERS Safety Report 5746214-X (Version None)
Quarter: 2008Q2

REPORT INFORMATION
  Report Type: 
  Country: None (occurrence: None)
  Receive Date: 20080522
  Receipt Date: 20080516
  Transmission Date: 20081010
  Serious: Yes (Hospitalization, Other)
  Sender: FDA-Public Use
  Company Number: US-ROCHE-565018

PATIENT
  Sex: Female
  Weight: 94.8 kg

DRUGS (7)
  1. BONIVA [Suspect]
     Indication: OSTEOPOROSIS
     Route: 065
     Dates: start: 20070701, end: 20080415
  2. NEXIUM [Concomitant]
  3. LIPITOR [Concomitant]
  4. LEVOTHYROXINE SODIUM [Concomitant]
  5. ASPIRIN [Concomitant]
  6. CALCIUM [Concomitant]
  7. 1 CONCOMITANT DRUG [Concomitant]
     Dosage: DRUG:K-LPR

REACTIONS (3)
  - BLOOD POTASSIUM DECREASED [None]
  - HEART RATE IRREGULAR [None]
  - LUNG NEOPLASM [None]
